FAERS Safety Report 4498116-7 (Version None)
Quarter: 2004Q4

REPORT INFORMATION
  Report Type: 
  Country: None (occurrence: None)
  Receive Date: 20041110
  Receipt Date: 20041008
  Transmission Date: 20050328
  Serious: Yes (Other)
  Sender: FDA-Public Use
  Company Number: TN-MERCK-0410USA01493

PATIENT
  Age: 31 Year
  Sex: Female

DRUGS (2)
  1. CUPRIMINE [Suspect]
     Indication: JUVENILE ARTHRITIS
     Route: 065
     Dates: start: 19940101, end: 19940601
  2. PREDNISONE [Concomitant]
     Route: 065

REACTIONS (6)
  - ANAPHYLACTIC SHOCK [None]
  - CHOLESTASIS [None]
  - CONDITION AGGRAVATED [None]
  - HYPERSENSITIVITY [None]
  - JUVENILE ARTHRITIS [None]
  - RENAL AMYLOIDOSIS [None]
